FAERS Safety Report 22256718 (Version 3)
Quarter: 2023Q2

REPORT INFORMATION
  Report Type: Report from Study
  Country: NL (occurrence: NL)
  Receive Date: 20230426
  Receipt Date: 20230616
  Transmission Date: 20230722
  Serious: Yes (Other)
  Sender: FDA-Public Use
  Company Number: NL-VER-202300042

PATIENT
  Age: 70 Year
  Sex: Male

DRUGS (1)
  1. TRIPTORELIN PAMOATE [Suspect]
     Active Substance: TRIPTORELIN PAMOATE
     Indication: Prostate cancer
     Route: 030

REACTIONS (3)
  - Angina pectoris [Unknown]
  - Chest pain [Recovered/Resolved]
  - Nausea [Unknown]

NARRATIVE: CASE EVENT DATE: 20221201
